FAERS Safety Report 7400260-9 (Version None)
Quarter: 2011Q2

REPORT INFORMATION
  Report Type: 
  Country: None (occurrence: None)
  Receive Date: 20110407
  Receipt Date: 20110329
  Transmission Date: 20111010
  Serious: Yes (Hospitalization)
  Sender: FDA-Public Use
  Company Number: US-ASTRAZENECA-2011SE13033

PATIENT
  Age: 87 Year
  Sex: Male

DRUGS (13)
  1. NEXIUM [Suspect]
     Route: 048
  2. METFORMIN [Concomitant]
     Dosage: 500 MG, 2 AT BREAKFAST, 2 AT SUPPER
  3. SPIRIVA [Concomitant]
  4. FLAX OIL CAPS [Concomitant]
  5. IRON [Concomitant]
  6. ACIPHEX [Concomitant]
  7. GARLIC PILLS [Concomitant]
     Dosage: 6 DAILY, 2 WITH EACH MEAL
  8. VITAMIN B-12 [Concomitant]
  9. CRESTOR [Concomitant]
  10. ISOSORBIDE MONONITRATE [Concomitant]
  11. LUTEIN [Concomitant]
  12. METOPROLOL SUCCINATE [Concomitant]
  13. SHAKLEE MULTIPLE VITAMINS [Concomitant]

REACTIONS (3)
  - DRUG DOSE OMISSION [None]
  - ANGIODYSPLASIA [None]
  - HAEMORRHAGE [None]
